FAERS Safety Report 7628756-5 (Version None)
Quarter: 2011Q3

REPORT INFORMATION
  Report Type: 
  Country: None (occurrence: None)
  Receive Date: 20110722
  Receipt Date: 20110131
  Transmission Date: 20111222
  Serious: No
  Sender: FDA-Public Use
  Company Number: US-BAYER-2011-013351

PATIENT
  Age: 46 Year
  Sex: Female

DRUGS (2)
  1. ALCOHOL SWABS [Concomitant]
  2. BETASERON [Suspect]
     Indication: RELAPSING-REMITTING MULTIPLE SCLEROSIS
     Dosage: 0.25 MG, UNK
     Route: 058

REACTIONS (4)
  - RASH [None]
  - RENAL DISORDER [None]
  - BLOOD PRESSURE INCREASED [None]
  - BACTERIAL INFECTION [None]
